FAERS Safety Report 10451234 (Version 1)
Quarter: 2014Q3

REPORT INFORMATION
  Report Type: Spontaneous
  Country: US (occurrence: US)
  Receive Date: 20140912
  Receipt Date: 20140912
  Transmission Date: 20150326
  Serious: No
  Sender: FDA-Public Use
  Company Number: US-GALDERMA-US14002319

PATIENT
  Age: 63 Year
  Sex: Female

DRUGS (4)
  1. FINACEA [Concomitant]
     Active Substance: AZELAIC ACID
     Indication: ERYTHEMA
     Route: 061
     Dates: start: 2013
  2. MIRVASO [Suspect]
     Active Substance: BRIMONIDINE TARTRATE
     Indication: ERYTHEMA
     Dosage: 0.33%
     Route: 061
     Dates: start: 20140609, end: 20140615
  3. CETAPHIL [Concomitant]
     Active Substance: AVOBENZONE\OCTOCRYLENE\TRICLOSAN
     Indication: THERAPEUTIC SKIN CARE TOPICAL
     Route: 061
  4. NEUTROGENA FACIAL CLEANSER [Concomitant]
     Indication: THERAPEUTIC SKIN CARE TOPICAL
     Route: 061
     Dates: start: 2013

REACTIONS (5)
  - Inappropriate schedule of drug administration [Recovered/Resolved]
  - Condition aggravated [Not Recovered/Not Resolved]
  - Erythema [Not Recovered/Not Resolved]
  - Off label use [Recovered/Resolved]
  - Activities of daily living impaired [Unknown]

NARRATIVE: CASE EVENT DATE: 20140609
